FAERS Safety Report 4381825-8 (Version None)
Quarter: 2004Q2

REPORT INFORMATION
  Report Type: 
  Country: None (occurrence: None)
  Receive Date: 20040615
  Receipt Date: 20040601
  Transmission Date: 20050107
  Serious: Yes (Hospitalization)
  Sender: FDA-Public Use
  Company Number: 2004SE02096

PATIENT
  Age: 91 Year
  Sex: Female

DRUGS (10)
  1. BLOPRESS TABLETS 4 [Suspect]
     Indication: HYPERTENSION
     Dosage: 4 MG QD PO
     Route: 048
     Dates: start: 20020214, end: 20040211
  2. ALFACALCIDOL [Concomitant]
  3. MENATETRENONE [Concomitant]
  4. REBAMIPIDE [Concomitant]
  5. LOXOPROFEN SODIUM [Concomitant]
  6. ETIZOLAM [Concomitant]
  7. BUFFERIN [Concomitant]
  8. BROTIZOLAM [Concomitant]
  9. FELBINAC [Concomitant]
  10. KETOPROFEN [Concomitant]

REACTIONS (3)
  - CONDITION AGGRAVATED [None]
  - DIABETES MELLITUS [None]
  - INTERSTITIAL LUNG DISEASE [None]
